FAERS Safety Report 7318951-7 (Version None)
Quarter: 2011Q1

REPORT INFORMATION
  Report Type: 
  Country: None (occurrence: None)
  Receive Date: 20110228
  Receipt Date: 20110216
  Transmission Date: 20110831
  Serious: Yes (Death)
  Sender: FDA-Public Use
  Company Number: JP-JNJFOC-20030904257

PATIENT
  Sex: Female
  Weight: 20 kg

DRUGS (17)
  1. REMICADE [Suspect]
     Indication: CROHN'S DISEASE
     Route: 042
  2. GASTER [Concomitant]
     Route: 042
     Dates: start: 20030626, end: 20030716
  3. BONALON [Concomitant]
     Indication: OSTEOPOROSIS
  4. ALFAROL [Concomitant]
     Indication: OSTEOPOROSIS
     Route: 048
     Dates: start: 20030523, end: 20030716
  5. REMICADE [Suspect]
     Route: 042
  6. SOLU-MEDROL [Concomitant]
     Indication: CROHN'S DISEASE
     Dosage: 28-94 MG DAILY.
     Route: 042
     Dates: start: 20030523, end: 20030824
  7. NORVASC [Concomitant]
     Indication: HYPERTENSION
     Route: 048
     Dates: start: 20030523, end: 20030824
  8. PROGRAF [Concomitant]
     Indication: CROHN'S DISEASE
     Route: 048
     Dates: start: 20030523, end: 20030824
  9. BOBURON [Concomitant]
     Route: 048
     Dates: start: 20030523, end: 20030716
  10. BAKTAR [Concomitant]
     Indication: ANTIFUNGAL PROPHYLAXIS
     Route: 048
     Dates: start: 20030523, end: 20030824
  11. CYCLOPHOSPHAMIDE [Concomitant]
     Route: 042
     Dates: start: 20030618, end: 20030809
  12. CELL CEPT [Concomitant]
     Indication: CROHN'S DISEASE
     Route: 048
     Dates: start: 20030523, end: 20030824
  13. FOSCAVIR [Concomitant]
     Indication: CYTOMEGALOVIRUS INFECTION
     Route: 042
     Dates: start: 20030630, end: 20030824
  14. FUNGUARD [Concomitant]
     Indication: FUNGAL INFECTION
     Route: 042
     Dates: start: 20030709, end: 20030824
  15. TPN [Concomitant]
     Route: 065
  16. ACICLOVIR [Concomitant]
     Indication: HERPES ZOSTER
  17. FUNGIZONE [Concomitant]
     Indication: GASTROINTESTINAL FUNGAL INFECTION

REACTIONS (7)
  - INTERSTITIAL LUNG DISEASE [None]
  - DISEASE PROGRESSION [None]
  - IMPAIRED HEALING [None]
  - GRAFT VERSUS HOST DISEASE [None]
  - PSEUDOMONAS INFECTION [None]
  - RESPIRATORY FAILURE [None]
  - SKIN EXFOLIATION [None]
